FAERS Safety Report 5237081-1 (Version None)
Quarter: 2007Q1

REPORT INFORMATION
  Report Type: 
  Country: None (occurrence: None)
  Receive Date: 20070209
  Receipt Date: 20070126
  Transmission Date: 20070707
  Serious: Yes (Other)
  Sender: FDA-Public Use
  Company Number: 2006-152273-NL

PATIENT
  Age: 26 Year
  Sex: Female
  Weight: 72.6 kg

DRUGS (2)
  1. NUVARING [Suspect]
     Indication: AMENORRHOEA
     Dosage: NI, VAGINAL,
     Route: 067
     Dates: start: 20040101
  2. NUVARING [Suspect]
     Indication: CONTRACEPTION
     Dosage: NI, VAGINAL,
     Route: 067
     Dates: start: 20040101

REACTIONS (2)
  - ARRHYTHMIA [None]
  - HEART RATE DECREASED [None]
